FAERS Safety Report 6007582-7 (Version None)
Quarter: 2008Q4

REPORT INFORMATION
  Report Type: 
  Country: None (occurrence: None)
  Receive Date: 20081217
  Receipt Date: 20080605
  Transmission Date: 20090506
  Serious: No
  Sender: FDA-Public Use
  Company Number: US-ASTRAZENECA-2008UW09931

PATIENT
  Age: 63 Year
  Sex: Female
  Weight: 61.2 kg

DRUGS (5)
  1. CRESTOR [Suspect]
     Indication: BLOOD CHOLESTEROL INCREASED
     Route: 048
  2. LISINOPRIL [Concomitant]
     Route: 048
  3. ISOSORBIDE DINITRATE [Concomitant]
  4. METOPROLOL TARTRATE [Concomitant]
     Route: 048
  5. ZANTAC [Concomitant]

REACTIONS (3)
  - ABDOMINAL DISCOMFORT [None]
  - DYSPEPSIA [None]
  - HELICOBACTER GASTRITIS [None]
